FAERS Safety Report 4591351-9 (Version None)
Quarter: 2005Q1

REPORT INFORMATION
  Report Type: 
  Country: None (occurrence: None)
  Receive Date: 20050223
  Receipt Date: 20050223
  Transmission Date: 20050727
  Serious: Yes (Other)
  Sender: FDA-Public Use
  Company Number: None

PATIENT
  Age: 13 Year
  Sex: Male
  Weight: 55 kg

DRUGS (5)
  1. CEFEPIME 2GM VIAL - DURA [Suspect]
     Indication: NAIL DISORDER
     Dosage: 2 GRAMS IV EVERY 12 HOURS
     Route: 042
     Dates: start: 20050117, end: 20050209
  2. CEFEPIME 2GM VIAL - DURA [Suspect]
     Indication: OSTEOMYELITIS
     Dosage: 2 GRAMS IV EVERY 12 HOURS
     Route: 042
     Dates: start: 20050117, end: 20050209
  3. CEFEPIME 2GM VIAL - DURA [Suspect]
  4. CEFEPIME 2GM VIAL - DURA [Suspect]
  5. CEFEPIME 2GM VIAL - DURA [Suspect]

REACTIONS (3)
  - NEUTROPHIL COUNT INCREASED [None]
  - PLATELET COUNT DECREASED [None]
  - WHITE BLOOD CELL COUNT INCREASED [None]
